FAERS Safety Report 7264263-X (Version None)
Quarter: 2011Q1

REPORT INFORMATION
  Report Type: 
  Country: None (occurrence: None)
  Receive Date: 20110131
  Receipt Date: 20110120
  Transmission Date: 20110831
  Serious: No
  Sender: FDA-Public Use
  Company Number: US-BIOGENIDEC-2011BI002846

PATIENT
  Age: 42 Year
  Sex: Female

DRUGS (3)
  1. TYSABRI [Suspect]
     Indication: MULTIPLE SCLEROSIS
     Route: 042
     Dates: start: 20101006
  2. TYSABRI [Suspect]
     Route: 042
     Dates: start: 20100217, end: 20100325
  3. TYSABRI [Suspect]
     Route: 042
     Dates: start: 20070905, end: 20080716

REACTIONS (2)
  - SCAB [None]
  - RASH PRURITIC [None]
